FAERS Safety Report 6870163-7 (Version None)
Quarter: 2010Q3

REPORT INFORMATION
  Report Type: 
  Country: None (occurrence: None)
  Receive Date: 20100712
  Receipt Date: 20100625
  Transmission Date: 20110219
  Serious: Yes (Other)
  Sender: FDA-Public Use
  Company Number: AEUSA201000241

PATIENT
  Sex: Female

DRUGS (1)
  1. GAMUNEX [Suspect]
     Indication: PRODUCT USED FOR UNKNOWN INDICATION
     Dosage: IV
     Route: 042
     Dates: start: 20090101

REACTIONS (5)
  - HEADACHE [None]
  - MUSCLE SPASMS [None]
  - MYALGIA [None]
  - PAIN [None]
  - WRONG TECHNIQUE IN DRUG USAGE PROCESS [None]
